FAERS Safety Report 8773972 (Version 1)
Quarter: 2012Q4

REPORT INFORMATION
  Report Type: 
  Country: US (occurrence: US)
  Receive Date: 20120907
  Receipt Date: 20120907
  Transmission Date: 20130627
  Serious: Yes (Hospitalization)
  Sender: FDA-Public Use
  Company Number: US-ELI_LILLY_AND_COMPANY-US201208009586

PATIENT
  Age: 42 Year
  Sex: Female

DRUGS (2)
  1. PROZAC [Suspect]
     Dosage: UNK, unknown
  2. WELLBUTRIN [Concomitant]

REACTIONS (6)
  - Hospitalisation [Unknown]
  - Irritability [Unknown]
  - Weight increased [Unknown]
  - Loss of libido [Unknown]
  - Drug ineffective [Unknown]
  - Speech disorder [Unknown]
